FAERS Safety Report 7396875-7 (Version None)
Quarter: 2011Q2

REPORT INFORMATION
  Report Type: 
  Country: None (occurrence: None)
  Receive Date: 20110406
  Receipt Date: 20110103
  Transmission Date: 20111010
  Serious: No
  Sender: FDA-Public Use
  Company Number: US-BAYER-2011-028016

PATIENT
  Sex: Female
  Weight: 66 kg

DRUGS (3)
  1. ZETIA [Concomitant]
  2. ATORVASTATIN CALCIUM [Concomitant]
  3. ALEVE (CAPLET) [Suspect]
     Indication: PAIN
     Dosage: BOTTLE COUNT 50S
     Route: 048
     Dates: start: 19860101

REACTIONS (1)
  - PAIN [None]
